FAERS Safety Report 18102702 (Version 1)
Quarter: 2020Q3

REPORT INFORMATION
  Report Type: Spontaneous
  Country: GB (occurrence: GB)
  Receive Date: 20200803
  Receipt Date: 20200803
  Transmission Date: 20201103
  Serious: Yes (Disabling, Other)
  Sender: FDA-Public Use
  Company Number: GB-DEXPHARM-20200654

PATIENT
  Age: 68 Year
  Sex: Male
  Weight: 88 kg

DRUGS (11)
  1. CAPASAL [Concomitant]
     Dates: start: 20200625
  2. SILDENAFIL. [Concomitant]
     Active Substance: SILDENAFIL
     Indication: RAYNAUD^S PHENOMENON
     Dates: start: 20191127
  3. ATORVASTATIN [Concomitant]
     Active Substance: ATORVASTATIN
     Dosage: IN EVENING
     Dates: start: 20180822
  4. OMEPRAZOLE. [Suspect]
     Active Substance: OMEPRAZOLE
     Dates: start: 20200316
  5. MOMETASONE [Concomitant]
     Active Substance: MOMETASONE
     Dosage: APPLY TO THE AFFECTED AREA
     Dates: start: 20200702
  6. CETIRIZINE [Concomitant]
     Active Substance: CETIRIZINE HYDROCHLORIDE
     Dates: start: 20180822
  7. MAGNESIUM HYDROXIDE. [Concomitant]
     Active Substance: MAGNESIUM HYDROXIDE
     Dosage: TAKE 30?45MLS (MIXED WITH WATER) BEFORE BEDTIME
     Dates: start: 20191210
  8. ACETYLSALICYLIC ACID [Concomitant]
     Active Substance: ASPIRIN
     Dates: start: 20180822
  9. CANDESARTAN. [Concomitant]
     Active Substance: CANDESARTAN
     Dates: start: 20180822
  10. CASSIA [Concomitant]
     Dosage: AT NIGHT
     Dates: start: 20180822
  11. CETRABEN EMOLLIENT CREAM [Concomitant]
     Dosage: USE AS DIRECTED
     Dates: start: 20200625

REACTIONS (1)
  - Lichenoid keratosis [Unknown]

NARRATIVE: CASE EVENT DATE: 20200703
